FAERS Safety Report 9742717 (Version 1)
Quarter: 2013Q4

REPORT INFORMATION
  Report Type: Spontaneous
  Country: US (occurrence: US)
  Receive Date: 20131210
  Receipt Date: 20131210
  Transmission Date: 20140711
  Serious: No
  Sender: FDA-Public Use
  Company Number: US-GILEAD-2009-0025746

PATIENT
  Sex: Female
  Weight: 100.24 kg

DRUGS (5)
  1. LETAIRIS [Suspect]
     Indication: PULMONARY ARTERIAL HYPERTENSION
     Route: 048
     Dates: start: 20090624
  2. PREDNISONE [Concomitant]
  3. AMLODIPINE [Concomitant]
  4. REVATIO [Concomitant]
  5. PREVACID [Concomitant]

REACTIONS (1)
  - Tremor [Unknown]
